FAERS Safety Report 10259499 (Version 1)
Quarter: 2014Q2

REPORT INFORMATION
  Report Type: Spontaneous
  Country: FR (occurrence: FR)
  Receive Date: 20140625
  Receipt Date: 20140625
  Transmission Date: 20141212
  Serious: Yes (Hospitalization)
  Sender: FDA-Public Use
  Company Number: FR-PFIZER INC-2014168003

PATIENT
  Age: 77 Year
  Sex: Male

DRUGS (11)
  1. TAHOR [Suspect]
     Indication: DYSLIPIDAEMIA
     Dosage: 10 MG, 1X/DAY
     Route: 048
  2. HALDOL DECANOAS [Suspect]
     Indication: PSYCHOTIC DISORDER
     Dosage: 1 DF, MONTHLY
     Route: 030
     Dates: start: 2011
  3. LEPTICUR [Suspect]
     Indication: TREMOR
     Dosage: 20 MG, 1X/DAY
     Route: 048
     Dates: start: 2013, end: 20140520
  4. DIAMICRON [Concomitant]
     Dosage: 120 MG, DAILY (60 MG, 2 DF)
  5. NOVONORM [Concomitant]
     Dosage: 6 MG, DAILY (2 MG, 3 DF)
  6. COVERSYL [Concomitant]
     Dosage: 5 MG, DAILY (1 DF)
  7. LANTUS [Concomitant]
     Dosage: 22 IU, 1X/DAY (IN THE EVENING)
  8. NOVORAPID [Concomitant]
  9. UVEDOSE [Concomitant]
     Dosage: 1 DF (AMPULE), MONTHLY
  10. DEXERYL ^PIERRE FABRE^ [Concomitant]
  11. LOCOID [Concomitant]
     Dosage: UNK (ON ANKLES)

REACTIONS (3)
  - Urinary retention [Recovered/Resolved]
  - Renal failure [Recovered/Resolved]
  - Rhabdomyolysis [Recovered/Resolved]
